FAERS Safety Report 4939800-8 (Version None)
Quarter: 2006Q1

REPORT INFORMATION
  Report Type: 
  Country: None (occurrence: None)
  Receive Date: 20060310
  Receipt Date: 20051001
  Transmission Date: 20060701
  Serious: Yes (Death, Hospitalization)
  Sender: FDA-Public Use
  Company Number: US-MERCK-0510USA01823

PATIENT
  Age: 46 Year
  Sex: Male
  Weight: 67 kg

DRUGS (1)
  1. VIOXX [Suspect]
     Route: 048

REACTIONS (17)
  - ACUTE MYOCARDIAL INFARCTION [None]
  - CARDIAC ARREST [None]
  - CARDIAC DISORDER [None]
  - CARDIAC MURMUR [None]
  - CARDIOGENIC SHOCK [None]
  - CARDIOMEGALY [None]
  - CHEST PAIN [None]
  - CORONARY ARTERY OCCLUSION [None]
  - DEATH [None]
  - ERECTILE DYSFUNCTION [None]
  - HYPERCHOLESTEROLAEMIA [None]
  - HYPERTENSION [None]
  - MITRAL VALVE INCOMPETENCE [None]
  - PAIN IN EXTREMITY [None]
  - PERICARDIAL HAEMORRHAGE [None]
  - RENAL FAILURE [None]
  - RIGHT VENTRICULAR FAILURE [None]
